FAERS Safety Report 10497654 (Version 1)
Quarter: 2014Q4

REPORT INFORMATION
  Report Type: Spontaneous
  Country: US (occurrence: US)
  Receive Date: 20141006
  Receipt Date: 20141006
  Transmission Date: 20150528
  Serious: No
  Sender: FDA-Public Use
  Company Number: US-PFIZER INC-2014269751

PATIENT
  Age: 78 Year
  Sex: Female
  Weight: 54.42 kg

DRUGS (4)
  1. ATENOLOL. [Concomitant]
     Active Substance: ATENOLOL
     Indication: HYPERTENSION
     Dosage: HALF OF 25MG, 1X/DAY
  2. HYDROCHLOROTHIAZIDE. [Concomitant]
     Active Substance: HYDROCHLOROTHIAZIDE
     Indication: HYPERTENSION
     Dosage: HALF OF 25MG, 1X/DAY
  3. SUTENT [Suspect]
     Active Substance: SUNITINIB MALATE
     Indication: THYROID CANCER METASTATIC
     Dosage: ONE 12.5 MG CAPSULE AND ONE 25 MG CAPSULE; ONCE A DAY
     Dates: start: 20140726, end: 2014
  4. AMLODIPINE [Concomitant]
     Active Substance: AMLODIPINE BESYLATE
     Indication: HYPERTENSION
     Dosage: 10 MG, 1X/DAY

REACTIONS (2)
  - Palmar erythema [Recovered/Resolved]
  - Plantar erythema [Recovered/Resolved]

NARRATIVE: CASE EVENT DATE: 2014
